FAERS Safety Report 4314794-7 (Version None)
Quarter: 2004Q1

REPORT INFORMATION
  Report Type: 
  Country: None (occurrence: None)
  Receive Date: 20040310
  Receipt Date: 20040302
  Transmission Date: 20041129
  Serious: Yes (Death, Hospitalization)
  Sender: FDA-Public Use
  Company Number: 200412869GDDC

PATIENT
  Age: 88 Year
  Sex: Female

DRUGS (15)
  1. ENOXAPARIN SODIUM [Suspect]
     Indication: ANGINA UNSTABLE
     Route: 058
     Dates: start: 20040105, end: 20040114
  2. PRAVASTATIN [Concomitant]
     Route: 048
     Dates: end: 20040107
  3. RAMIPRIL [Concomitant]
     Route: 048
     Dates: end: 20040112
  4. OMEPRAZOLE [Concomitant]
     Dosage: DOSE: 20-40
     Route: 048
     Dates: end: 20040114
  5. AMLODIPINE [Concomitant]
     Route: 048
     Dates: end: 20040113
  6. ISOSORBIDE [Concomitant]
     Route: 048
     Dates: end: 20040113
  7. CARVEDILOL [Concomitant]
     Route: 048
     Dates: end: 20040114
  8. DRIED FERROUS SULPHATE [Concomitant]
     Dates: end: 20040114
  9. ASPIRIN [Concomitant]
     Route: 048
     Dates: start: 20040113
  10. TRUSOPT [Concomitant]
     Dosage: DOSE: UNK
     Route: 047
     Dates: end: 20040114
  11. XALATAN [Concomitant]
     Dosage: DOSE: UNK
     Route: 047
     Dates: end: 20040114
  12. FRUSEMIDE [Concomitant]
     Route: 048
     Dates: end: 20040113
  13. ATORVASTATIN [Concomitant]
     Route: 048
     Dates: end: 20040114
  14. CLOPIDOGREL BISULFATE [Concomitant]
     Route: 048
     Dates: end: 20040113
  15. NICORANDIL [Concomitant]
     Route: 048
     Dates: end: 20040114

REACTIONS (4)
  - CORONARY ARTERY OCCLUSION [None]
  - HAEMATOMA [None]
  - MYOCARDIAL INFARCTION [None]
  - SUDDEN DEATH [None]
